FAERS Safety Report 25704295 (Version 4)
Quarter: 2025Q4

REPORT INFORMATION
  Report Type: Report from Study
  Country: US (occurrence: US)
  Receive Date: 20250820
  Receipt Date: 20251113
  Transmission Date: 20260119
  Serious: No
  Sender: ACADIA PHARMACEUTICALS
  Company Number: US-ACADIA PHARMACEUTICALS INC.-ACA-2025-TRF-009295

PATIENT
  Sex: Female

DRUGS (2)
  1. DAYBUE [Suspect]
     Active Substance: TROFINETIDE
     Indication: Rett syndrome
     Dosage: 40 MILLILITER, BID
     Route: 048
     Dates: start: 202412
  2. CANNABIDIOL\HERBALS [Concomitant]
     Active Substance: CANNABIDIOL\HERBALS
     Dosage: 50 MILLIGRAM, BID

REACTIONS (5)
  - Diarrhoea [Not Recovered/Not Resolved]
  - Nasal congestion [Not Recovered/Not Resolved]
  - Cough [Not Recovered/Not Resolved]
  - Bruxism [Not Recovered/Not Resolved]
  - Throat irritation [Not Recovered/Not Resolved]
